FAERS Safety Report 20561568 (Version 1)
Quarter: 2022Q1

REPORT INFORMATION
  Report Type: Report from Study
  Country: BR (occurrence: BR)
  Receive Date: 20220307
  Receipt Date: 20220307
  Transmission Date: 20220423
  Serious: Yes (Hospitalization)
  Sender: FDA-Public Use
  Company Number: BR-UCBSA-2022012057

PATIENT
  Sex: Female
  Weight: 78 kg

DRUGS (10)
  1. CERTOLIZUMAB PEGOL [Suspect]
     Active Substance: CERTOLIZUMAB PEGOL
     Indication: Ankylosing spondylitis
     Dosage: 200 MILLIGRAM, EV 2 WEEKS(QOW)
     Dates: start: 202109
  2. OMEPRAZOLE [Concomitant]
     Active Substance: OMEPRAZOLE
     Indication: Reflux gastritis
     Dosage: 40 MILLIGRAM, 2X/DAY (BID)
     Route: 048
  3. HUMECTOL [Concomitant]
     Indication: Gastrointestinal disorder
     Dosage: UNK
     Route: 048
  4. DIPIRONA [METAMIZOLE SODIUM] [Concomitant]
     Indication: Pain
     Dosage: 1 DOSAGE FORM, ONCE DAILY (QD)
     Route: 048
  5. CYCLOBENZAPRINE [Concomitant]
     Active Substance: CYCLOBENZAPRINE
     Indication: Pain
     Dosage: 1 DOSAGE FORM, ONCE DAILY (QD)
     Route: 048
  6. DICLOFENAC [Concomitant]
     Active Substance: DICLOFENAC
     Indication: Pain
     Dosage: 2 DOSAGE FORM, ONCE DAILY (QD)
     Route: 048
  7. GABAPENTIN [Concomitant]
     Active Substance: GABAPENTIN
     Indication: Pain
     Dosage: 3 DOSAGE FORM, ONCE DAILY (QD)
     Route: 048
  8. DOXEPIN [Concomitant]
     Active Substance: DOXEPIN
     Indication: Hypersensitivity
     Dosage: 1 DOSAGE FORM, ONCE DAILY (QD)
     Route: 048
  9. SINTOCALMY [Concomitant]
     Indication: Product used for unknown indication
     Route: 065
  10. EMMA [Concomitant]
     Indication: Product used for unknown indication

REACTIONS (2)
  - Endometriosis [Recovering/Resolving]
  - Female sterilisation [Unknown]
